FAERS Safety Report 5587447-5 (Version None)
Quarter: 2008Q1

REPORT INFORMATION
  Report Type: 
  Country: None (occurrence: None)
  Receive Date: 20080110
  Receipt Date: 20080104
  Transmission Date: 20080703
  Serious: Yes (Other)
  Sender: FDA-Public Use
  Company Number: US-BOEHRINGER INGELHEIM PHARMACEUTICALS, INC.-2008-BP-00264BP

PATIENT
  Age: 84 Year
  Sex: Male

DRUGS (2)
  1. FLOMAX [Suspect]
     Indication: BENIGN PROSTATIC HYPERPLASIA
     Route: 048
  2. NAMENDA [Concomitant]
     Indication: DEMENTIA ALZHEIMER'S TYPE

REACTIONS (4)
  - ASTHENIA [None]
  - DIZZINESS [None]
  - PROSTATE CANCER [None]
  - SOMNOLENCE [None]
